FAERS Safety Report 6015474-2 (Version None)
Quarter: 2008Q4

REPORT INFORMATION
  Report Type: 
  Country: None (occurrence: None)
  Receive Date: 20081222
  Receipt Date: 20081218
  Transmission Date: 20090506
  Serious: Yes (Hospitalization)
  Sender: FDA-Public Use
  Company Number: IL-ELI_LILLY_AND_COMPANY-IL200811005296

PATIENT
  Sex: Male
  Weight: 105 kg

DRUGS (10)
  1. BYETTA [Suspect]
     Indication: TYPE 2 DIABETES MELLITUS
     Dosage: 10 UG, 2/D
     Route: 058
     Dates: start: 20080713, end: 20080825
  2. GLUCOMIN [Concomitant]
     Indication: DIABETES MELLITUS
     Dosage: 850 MG, 3/D
     Route: 048
     Dates: start: 20060101
  3. GLUBEN [Concomitant]
     Indication: DIABETES MELLITUS
     Dosage: 5 MG, 3/D
     Route: 048
     Dates: start: 20060101
  4. BEZAFIBRAT [Concomitant]
     Indication: HYPERLIPIDAEMIA
     Dosage: 400 MG, DAILY (1/D)
     Route: 048
     Dates: start: 20040101
  5. TRITACE [Concomitant]
     Indication: NEPHROPATHY
     Dosage: 10 MG, DAILY (1/D)
     Route: 048
     Dates: start: 20040101
  6. SIMVASTATIN [Concomitant]
     Indication: HYPERLIPIDAEMIA
     Dosage: 20 MG, DAILY (1/D)
     Route: 048
     Dates: start: 20040101
  7. OMEPRADEX [Concomitant]
     Dosage: 20 MG, DAILY (1/D)
     Route: 048
     Dates: start: 20040101
  8. MICROPIRIN [Concomitant]
     Dosage: 100 MG, DAILY (1/D)
     Route: 048
     Dates: start: 20040101
  9. NORMALOL [Concomitant]
     Dosage: 25 MG, DAILY (1/D)
     Route: 048
     Dates: start: 20040101
  10. INSULATARD /00030504/ [Concomitant]
     Dosage: 20 U, EACH EVENING
     Route: 065
     Dates: start: 20070101

REACTIONS (4)
  - ABDOMINAL PAIN UPPER [None]
  - NAUSEA [None]
  - PANCREATITIS [None]
  - VOMITING [None]
